FAERS Safety Report 22298888 (Version 2)
Quarter: 2023Q2

REPORT INFORMATION
  Report Type: Spontaneous
  Country: BG (occurrence: BG)
  Receive Date: 20230509
  Receipt Date: 20230516
  Transmission Date: 20230722
  Serious: Yes (Hospitalization, Other)
  Sender: FDA-Public Use
  Company Number: BG-EMA-DD-20230501-225467-150232

PATIENT
  Age: 72 Year
  Sex: Female

DRUGS (2)
  1. HYDROCHLOROTHIAZIDE\IRBESARTAN [Suspect]
     Active Substance: HYDROCHLOROTHIAZIDE\IRBESARTAN
     Indication: Hypertension
     Dosage: 150 MG/12.5 MG, QD
     Route: 048
  2. BISOPROLOL [Concomitant]
     Active Substance: BISOPROLOL
     Indication: Hypertension
     Dosage: 5 MG, QD

REACTIONS (5)
  - Squamous cell carcinoma [Recovered/Resolved]
  - Skin lesion [Recovered/Resolved]
  - Neoplasm [Recovered/Resolved]
  - Mass [Recovered/Resolved]
  - Mucosal discolouration [Recovered/Resolved]
